FAERS Safety Report 6772143-9 (Version None)
Quarter: 2010Q2

REPORT INFORMATION
  Report Type: 
  Country: None (occurrence: None)
  Receive Date: 20100616
  Receipt Date: 20100607
  Transmission Date: 20101027
  Serious: Yes (Other)
  Sender: FDA-Public Use
  Company Number: B0660849A

PATIENT
  Age: 28 Year
  Sex: Female

DRUGS (2)
  1. PROPRANOLOL [Suspect]
     Indication: VENTRICULAR TACHYCARDIA
     Dosage: 10MG PER DAY
  2. MAGNESIUM SULFATE [Suspect]

REACTIONS (6)
  - DRUG EXPOSURE DURING PREGNANCY [None]
  - DRUG INEFFECTIVE [None]
  - FOETAL DISTRESS SYNDROME [None]
  - LABILE BLOOD PRESSURE [None]
  - LABOUR INDUCTION [None]
  - LIVE BIRTH [None]
